FAERS Safety Report 10335064 (Version 1)
Quarter: 2014Q3

REPORT INFORMATION
  Report Type: Spontaneous
  Country: US (occurrence: US)
  Receive Date: 20140723
  Receipt Date: 20140723
  Transmission Date: 20150326
  Serious: No
  Sender: FDA-Public Use
  Company Number: US-UNITED THERAPEUTICS-UTC-047761

PATIENT
  Sex: Female
  Weight: 113.4 kg

DRUGS (1)
  1. REMODULIN [Suspect]
     Active Substance: TREPROSTINIL
     Route: 058
     Dates: start: 20100823

REACTIONS (2)
  - Accidental overdose [Unknown]
  - Medication error [Unknown]

NARRATIVE: CASE EVENT DATE: 2014
